FAERS Safety Report 8310434 (Version 2)
Quarter: 2013Q1

REPORT INFORMATION
  Report Type: Report from Study
  Country: DE (occurrence: DE)
  Receive Date: 20111223
  Receipt Date: 20130222
  Transmission Date: 20140127
  Serious: Yes (Death, Hospitalization, Other)
  Sender: FDA-Public Use
  Company Number: DE-BRISTOL-MYERS SQUIBB COMPANY-16299562

PATIENT
  Age: 47 Year
  Sex: Male

DRUGS (4)
  1. SAXAGLIPTIN [Suspect]
     Indication: TYPE 2 DIABETES MELLITUS
     Route: 048
     Dates: start: 20110527, end: 20111129
  2. METFORMIN HCL [Suspect]
     Indication: TYPE 2 DIABETES MELLITUS
     Route: 048
     Dates: end: 20111129
  3. BLINDED: PLACEBO [Suspect]
     Indication: TYPE 2 DIABETES MELLITUS
     Route: 048
     Dates: start: 20110527, end: 20111129
  4. ASPIRIN [Concomitant]
     Dosage: = { 100MG (27MAY2011,13DEC2011,22AUG2011)
     Dates: start: 20110527

REACTIONS (1)
  - Rhabdomyosarcoma [Fatal]
